FAERS Safety Report 6788227-5 (Version None)
Quarter: 2010Q2

REPORT INFORMATION
  Report Type: 
  Country: None (occurrence: None)
  Receive Date: 20100623
  Receipt Date: 20080508
  Transmission Date: 20101027
  Serious: No
  Sender: FDA-Public Use
  Company Number: US-PFIZER INC-2008018148

PATIENT
  Sex: Female
  Weight: 112.27 kg

DRUGS (10)
  1. CADUET [Suspect]
     Indication: HYPERTENSION
     Dosage: 10/20MG  TDD:10/20MG
     Route: 048
     Dates: start: 20070101
  2. CADUET [Suspect]
     Indication: BLOOD CHOLESTEROL INCREASED
  3. DRUG, UNSPECIFIED [Concomitant]
  4. METFORMIN HCL [Concomitant]
  5. GLUCOTROL [Concomitant]
  6. LISINOPRIL [Concomitant]
  7. ATENOLOL [Concomitant]
  8. ACETYLSALICYLIC ACID [Concomitant]
  9. PREVACID [Concomitant]
  10. GLIPIZIDE [Concomitant]
     Indication: DIABETES MELLITUS

REACTIONS (1)
  - DRUG INEFFECTIVE [None]
